FAERS Safety Report 7764456-9 (Version None)
Quarter: 2011Q3

REPORT INFORMATION
  Report Type: 
  Country: None (occurrence: None)
  Receive Date: 20110919
  Receipt Date: 20110907
  Transmission Date: 20111222
  Serious: Yes (Other)
  Sender: FDA-Public Use
  Company Number: 2011MA013426

PATIENT
  Age: 75 Year
  Sex: Male

DRUGS (10)
  1. OMEPRAZOLE [Concomitant]
  2. ACETYLSALICYLIC ACID SRT [Concomitant]
  3. ACETAMINOPHEN [Concomitant]
  4. PERINDOPRIL ERBUMINE [Concomitant]
  5. AMLODIPINE [Concomitant]
  6. TAMSULOSIN HCL [Concomitant]
  7. ISOSORBIDE MONONITRATE [Concomitant]
  8. ISOSORBIDE MONONITRATE [Suspect]
     Dosage: 10 MG;BID;PO
     Route: 048
  9. SIMVASTATIN [Concomitant]
  10. FYBOGEL [Concomitant]

REACTIONS (4)
  - PRURITUS [None]
  - CONTUSION [None]
  - SKIN DISCOLOURATION [None]
  - HEADACHE [None]
